FAERS Safety Report 8978241 (Version 1)
Quarter: 2012Q4

REPORT INFORMATION
  Report Type: 
  Country: FR (occurrence: FR)
  Receive Date: 20121220
  Receipt Date: 20121220
  Transmission Date: 20130627
  Serious: Yes (Hospitalization)
  Sender: FDA-Public Use
  Company Number: FR-ABBOTT-12P-056-1023039-00

PATIENT
  Age: 85 Year
  Sex: Female

DRUGS (10)
  1. DEPAKOTE [Suspect]
     Indication: EPILEPSY
     Route: 048
  2. DEPAKOTE [Suspect]
     Route: 048
  3. ARTANE [Suspect]
     Indication: PARKINSON^S DISEASE
     Route: 048
     Dates: end: 20121110
  4. MODOPAR [Suspect]
     Indication: PARKINSON^S DISEASE
     Route: 048
     Dates: end: 20121119
  5. RISPERDAL [Suspect]
     Indication: PRODUCT USED FOR UNKNOWN INDICATION
     Route: 048
  6. TRIVASTAL [Suspect]
     Indication: PARKINSON^S DISEASE
     Route: 048
     Dates: end: 20121119
  7. SERESTA [Suspect]
     Indication: DEPRESSION
     Route: 048
  8. KARDEGIC [Concomitant]
     Indication: PRODUCT USED FOR UNKNOWN INDICATION
  9. LEVOTHYROX [Concomitant]
     Indication: PRODUCT USED FOR UNKNOWN INDICATION
  10. FORLAX [Concomitant]
     Indication: PRODUCT USED FOR UNKNOWN INDICATION

REACTIONS (3)
  - Logorrhoea [Unknown]
  - Agitation [Unknown]
  - Confusional state [Unknown]
